FAERS Safety Report 8084394 (Version 2)
Quarter: 2014Q3

REPORT INFORMATION
  Report Type: Spontaneous
  Country: US (occurrence: US)
  Receive Date: 20110810
  Receipt Date: 20140722
  Transmission Date: 20150326
  Serious: Yes (Hospitalization, Other)
  Sender: FDA-Public Use
  Company Number: US-ROCHE-795300

PATIENT
  Sex: Female

DRUGS (5)
  1. KLONOPIN [Suspect]
     Active Substance: CLONAZEPAM
     Indication: PANIC ATTACK
     Dosage: 3-4 MG
     Route: 065
  2. LYRICA [Concomitant]
     Active Substance: PREGABALIN
     Indication: FIBROMYALGIA
  3. NARDIL [Concomitant]
     Active Substance: PHENELZINE SULFATE
  4. VICODIN [Suspect]
     Active Substance: ACETAMINOPHEN\HYDROCODONE BITARTRATE
     Indication: BACK PAIN
     Route: 065
  5. PREMARIN [Concomitant]
     Active Substance: ESTROGENS, CONJUGATED
     Indication: HYSTERECTOMY

REACTIONS (20)
  - Wandering pacemaker [Unknown]
  - Antiphospholipid antibodies [Unknown]
  - Paraesthesia oral [Unknown]
  - Intervertebral disc protrusion [Unknown]
  - Headache [Unknown]
  - Cerebrovascular accident [Recovering/Resolving]
  - Transient ischaemic attack [Not Recovered/Not Resolved]
  - Memory impairment [Unknown]
  - Epstein-Barr virus infection [Unknown]
  - Abasia [Recovered/Resolved]
  - Arthritis [Not Recovered/Not Resolved]
  - Cerebrovascular accident [Unknown]
  - Nausea [Unknown]
  - Back pain [Not Recovered/Not Resolved]
  - Dysarthria [Unknown]
  - Tinnitus [Not Recovered/Not Resolved]
  - Cardiac septal defect [Recovered/Resolved]
  - Deafness [Not Recovered/Not Resolved]
  - Carpal tunnel syndrome [Unknown]
  - Fibromyalgia [Unknown]

NARRATIVE: CASE EVENT DATE: 1994
